FAERS Safety Report 8579895-6 (Version None)
Quarter: 2012Q3

REPORT INFORMATION
  Report Type: 
  Country: None (occurrence: None)
  Receive Date: 20120808
  Receipt Date: 20120802
  Transmission Date: 20120928
  Serious: Yes (Other)
  Sender: FDA-Public Use
  Company Number: DE-BAYER-2012-078963

PATIENT
  Age: 43 Year
  Sex: Female
  Weight: 44.898 kg

DRUGS (1)
  1. MIRENA [Suspect]
     Indication: CONTRACEPTION
     Dosage: 20 MCG/24HR, CONT
     Route: 015
     Dates: start: 20071201, end: 20111101

REACTIONS (10)
  - PANIC ATTACK [None]
  - HEPATIC FUNCTION ABNORMAL [None]
  - ACIDOSIS [None]
  - CIRCULATORY COLLAPSE [None]
  - PRURITUS [None]
  - HYPOGLYCAEMIA [None]
  - MIGRAINE [None]
  - ANXIETY [None]
  - DIZZINESS [None]
  - RENAL IMPAIRMENT [None]
